FAERS Safety Report 23664044 (Version 1)
Quarter: 2024Q1

REPORT INFORMATION
  Report Type: Report from Study
  Country: CA (occurrence: CA)
  Receive Date: 20240322
  Receipt Date: 20240322
  Transmission Date: 20240410
  Serious: Yes (Other)
  Sender: FDA-Public Use
  Company Number: CA-OTSUKA-2023_021613

PATIENT
  Age: 44 Year
  Sex: Male

DRUGS (4)
  1. TOLVAPTAN [Suspect]
     Active Substance: TOLVAPTAN
     Indication: Congenital cystic kidney disease
     Dosage: 45 MG, QD
     Route: 048
     Dates: start: 20230805
  2. TOLVAPTAN [Suspect]
     Active Substance: TOLVAPTAN
     Dosage: 15 MG, QD
     Route: 048
     Dates: start: 20230805
  3. CLONAZEPAM [Concomitant]
     Active Substance: CLONAZEPAM
     Indication: Product used for unknown indication
     Dosage: 0.5 MG
     Route: 065
  4. LIPITOR [Concomitant]
     Active Substance: ATORVASTATIN CALCIUM
     Indication: Product used for unknown indication
     Dosage: UNK
     Route: 065

REACTIONS (19)
  - Haematochezia [Unknown]
  - Feeling abnormal [Unknown]
  - Thirst decreased [Unknown]
  - Fluid intake reduced [Unknown]
  - COVID-19 [Unknown]
  - Anxiety [Recovering/Resolving]
  - Abdominal pain upper [Unknown]
  - Gastroenteritis viral [Unknown]
  - Blood pressure decreased [Unknown]
  - Nausea [Unknown]
  - Insomnia [Recovering/Resolving]
  - Gastrooesophageal reflux disease [Unknown]
  - Asthenia [Unknown]
  - Abdominal pain [Unknown]
  - Nocturia [Recovering/Resolving]
  - Fatigue [Unknown]
  - Polydipsia [Unknown]
  - Headache [Unknown]
  - Diarrhoea [Unknown]

NARRATIVE: CASE EVENT DATE: 20231202
